FAERS Safety Report 9102816 (Version 2)
Quarter: 2013Q1

REPORT INFORMATION
  Report Type: Spontaneous
  Country: GB (occurrence: GB)
  Receive Date: 20130218
  Receipt Date: 20130222
  Transmission Date: 20140127
  Serious: Yes (Hospitalization)
  Sender: FDA-Public Use
  Company Number: GB-ABBOTT-13P-167-1050129-00

PATIENT
  Age: 60 Year
  Sex: 0

DRUGS (17)
  1. CLARITHROMYCIN [Suspect]
     Indication: PRODUCT USED FOR UNKNOWN INDICATION
     Dosage: 1 DOSE ADMINISTERED
     Route: 048
     Dates: start: 20110310, end: 20110310
  2. AMOXICILLIN [Suspect]
     Indication: PRODUCT USED FOR UNKNOWN INDICATION
     Dosage: 1 DOSE ADMINISTERED
     Route: 048
     Dates: start: 20110310, end: 20110310
  3. ERYTHROMYCIN [Suspect]
     Indication: GASTROINTESTINAL MOTILITY DISORDER
     Dosage: CUMULATIVE DOSE TO ONSET: 18734MG
     Route: 042
     Dates: start: 20110314, end: 20110317
  4. LANSOPRAZOLE [Suspect]
     Indication: PRODUCT USED FOR UNKNOWN INDICATION
     Dosage: MORNING
     Route: 048
  5. FLUCLOXACILLIN [Suspect]
     Indication: PRODUCT USED FOR UNKNOWN INDICATION
     Dosage: 4 DOSES ADMINISTERED
     Route: 048
     Dates: start: 20110329, end: 20110330
  6. LEVOFLOXACIN [Suspect]
     Indication: PRODUCT USED FOR UNKNOWN INDICATION
     Route: 042
     Dates: start: 20110311, end: 20110321
  7. MEROPENEM [Suspect]
     Indication: PRODUCT USED FOR UNKNOWN INDICATION
     Route: 042
     Dates: start: 20110312, end: 20110321
  8. TEICOPLANIN [Suspect]
     Indication: PRODUCT USED FOR UNKNOWN INDICATION
     Dosage: 1.2MG TOTAL
     Route: 042
     Dates: start: 20110310
  9. TEICOPLANIN [Suspect]
     Route: 042
     Dates: end: 20110314
  10. LOPERAMIDE [Concomitant]
     Indication: PRODUCT USED FOR UNKNOWN INDICATION
     Dosage: CUMULATIVE DOSE TO 1ST RXN: 8MG
     Route: 048
     Dates: start: 20110503
  11. HYOSCINE BUTYLBROMIDE [Concomitant]
     Indication: PRODUCT USED FOR UNKNOWN INDICATION
     Dosage: CUMULATIVE DOSE TO 1ST RXN:80MG
     Route: 048
     Dates: start: 20110503
  12. FLUOXETINE [Concomitant]
     Indication: PRODUCT USED FOR UNKNOWN INDICATION
     Dosage: MORNING
     Route: 048
  13. NICOTINE [Concomitant]
     Indication: PRODUCT USED FOR UNKNOWN INDICATION
     Route: 062
  14. PARACETAMOL [Concomitant]
     Indication: PRODUCT USED FOR UNKNOWN INDICATION
  15. DALTEPARIN [Concomitant]
     Indication: PRODUCT USED FOR UNKNOWN INDICATION
     Dosage: 18 INTERNATIONAL UNITS THOUSANDS
     Route: 058
  16. FUROSEMIDE [Concomitant]
     Indication: PRODUCT USED FOR UNKNOWN INDICATION
     Route: 048
  17. FERROUS SULPHATE [Concomitant]
     Indication: PRODUCT USED FOR UNKNOWN INDICATION

REACTIONS (2)
  - Gastrointestinal hypermotility [Recovered/Resolved]
  - Clostridium difficile colitis [Recovered/Resolved]
